FAERS Safety Report 22172253 (Version 1)
Quarter: 2023Q2

REPORT INFORMATION
  Report Type: Spontaneous
  Country: US (occurrence: None)
  Receive Date: 20230403
  Receipt Date: 20230403
  Transmission Date: 20230722
  Serious: Yes (Hospitalization)
  Sender: FDA-Public Use
  Company Number: None

PATIENT
  Sex: Female

DRUGS (2)
  1. ICATIBANT [Suspect]
     Active Substance: ICATIBANT ACETATE
     Indication: Immunodeficiency
     Dosage: INJECT ONE 30MG SYRINGE SUBCUTANEOUSLY IN THE ABDOMINAL AREA AT ONSET OF HAE ATTACK. MAY USE A?SECON
     Route: 058
     Dates: start: 20190822
  2. ORLADEYO CAP [Concomitant]

REACTIONS (4)
  - Dehydration [None]
  - Hereditary angioedema [None]
  - Injection site irritation [None]
  - Gilbert^s syndrome [None]
